FAERS Safety Report 17685830 (Version 1)
Quarter: 2020Q2

REPORT INFORMATION
  Report Type: Spontaneous
  Country: US (occurrence: US)
  Receive Date: 20200409
  Receipt Date: 20200409
  Transmission Date: 20200714
  Serious: Yes (Disabling)
  Sender: FDA-Public Use
  Company Number: None

PATIENT
  Age: 41 Year
  Sex: Female
  Weight: 113.4 kg

DRUGS (2)
  1. CALM REST AND RELAX HEMP EXTRACT FORMULA (CBG) [Suspect]
     Active Substance: CANNABIGEROL\HERBALS
  2. CALM REST AND RELAX HEMP EXTRACT FORMULA (CBD) [Suspect]
     Active Substance: CANNABIDIOL\HERBALS
     Indication: SLEEP DISORDER
     Route: 048
     Dates: start: 20200101, end: 20200307

REACTIONS (2)
  - Product quality issue [None]
  - Malaise [None]

NARRATIVE: CASE EVENT DATE: 20200307
